FAERS Safety Report 8012654-1 (Version None)
Quarter: 2011Q4

REPORT INFORMATION
  Report Type: 
  Country: None (occurrence: None)
  Receive Date: 20111222
  Receipt Date: 20111212
  Transmission Date: 20120403
  Serious: Yes (Hospitalization)
  Sender: FDA-Public Use
  Company Number: TCI2011A06550

PATIENT
  Age: 72 Year
  Sex: Female

DRUGS (3)
  1. AMARYL [Suspect]
  2. NESINA [Suspect]
     Indication: DIABETES MELLITUS
     Dosage: 25 MG (25 MG, 1 IN 1 D)
     Route: 048
  3. ACTOS [Suspect]
     Route: 048

REACTIONS (1)
  - HYPOGLYCAEMIC COMA [None]
